FAERS Safety Report 17444111 (Version 1)
Quarter: 2020Q1

REPORT INFORMATION
  Report Type: Spontaneous
  Country: US (occurrence: US)
  Receive Date: 20200207
  Receipt Date: 20200207
  Transmission Date: 20200409
  Serious: Yes (Death)
  Sender: FDA-Public Use
  Company Number: None

PATIENT
  Age: 74 Year
  Sex: Male

DRUGS (1)
  1. PROLIA [Suspect]
     Active Substance: DENOSUMAB
     Route: 058

REACTIONS (3)
  - Death [None]
  - Product prescribing error [None]
  - Intercepted wrong patient selected [None]

NARRATIVE: CASE EVENT DATE: 20200128
